FAERS Safety Report 15663923 (Version 2)
Quarter: 2019Q1

REPORT INFORMATION
  Report Type: Spontaneous
  Country: JP (occurrence: JP)
  Receive Date: 20181128
  Receipt Date: 20190102
  Transmission Date: 20190417
  Serious: Yes (Death, Hospitalization, Other)
  Sender: FDA-Public Use
  Company Number: JP-BRISTOL-MYERS SQUIBB COMPANY-BMS-2016-050520

PATIENT
  Age: 59 Year
  Sex: Male
  Weight: 54.7 kg

DRUGS (1)
  1. OPDIVO [Suspect]
     Active Substance: NIVOLUMAB
     Indication: NON-SMALL CELL LUNG CANCER
     Dosage: 3 MG/KG, Q2WK
     Route: 041
     Dates: start: 20160607, end: 20160621

REACTIONS (3)
  - Malignant neoplasm progression [Fatal]
  - Interstitial lung disease [Fatal]
  - Epilepsy [Unknown]

NARRATIVE: CASE EVENT DATE: 20160614
